FAERS Safety Report 12489936 (Version 2)
Quarter: 2016Q3

REPORT INFORMATION
  Report Type: Report from Study
  Country: FI (occurrence: FI)
  Receive Date: 20160622
  Receipt Date: 20160802
  Transmission Date: 20161109
  Serious: Yes (Hospitalization)
  Sender: FDA-Public Use
  Company Number: FI-ABBVIE-16P-055-1656544-00

PATIENT
  Sex: Male
  Weight: 69 kg

DRUGS (17)
  1. KLEXANE [Concomitant]
     Active Substance: ENOXAPARIN
     Indication: PRODUCT USED FOR UNKNOWN INDICATION
     Route: 058
  2. PANADOL FORTE [Concomitant]
     Active Substance: ACETAMINOPHEN\CAFFEINE
     Indication: BACK PAIN
     Dosage: MAX 3 TABLET PER DAY
  3. CIMZIA [Concomitant]
     Active Substance: CERTOLIZUMAB PEGOL
     Indication: RHEUMATIC DISORDER
     Route: 058
  4. ALBETOL [Concomitant]
     Indication: HYPERTENSION
     Route: 042
  5. SOMAC [Concomitant]
     Active Substance: PANTOPRAZOLE SODIUM
     Indication: PRODUCT USED FOR UNKNOWN INDICATION
  6. SIFROL [Concomitant]
     Active Substance: PRAMIPEXOLE
     Indication: PRODUCT USED FOR UNKNOWN INDICATION
  7. SILDENAFIL ORION [Concomitant]
     Indication: PRODUCT USED FOR UNKNOWN INDICATION
  8. KALISOL [Concomitant]
     Indication: PRODUCT USED FOR UNKNOWN INDICATION
     Dosage: SOLUTION
     Route: 048
  9. LORAZEPAM. [Concomitant]
     Active Substance: LORAZEPAM
     Indication: PRODUCT USED FOR UNKNOWN INDICATION
     Dosage: MAX 1 MG/DAY
     Route: 042
  10. DUODOPA [Suspect]
     Active Substance: CARBIDOPA\LEVODOPA
     Indication: PARKINSON^S DISEASE
     Dosage: 16H: MD 18ML; CD 4.3ML/H; ED 1ML AS NEEDED
     Route: 050
     Dates: start: 20140826
  11. TRAMAL [Concomitant]
     Active Substance: TRAMADOL
     Indication: PRODUCT USED FOR UNKNOWN INDICATION
     Dosage: MAX 150 MG PER DAY
  12. ZOPINOX [Concomitant]
     Active Substance: ZOPICLONE
     Indication: PRODUCT USED FOR UNKNOWN INDICATION
     Dosage: MAX 7.5 MG/DAY
  13. OMEPRAZOLE. [Concomitant]
     Active Substance: OMEPRAZOLE
     Indication: PRODUCT USED FOR UNKNOWN INDICATION
  14. MADOPAR [Concomitant]
     Active Substance: BENSERAZIDE HYDROCHLORIDE\LEVODOPA
     Indication: PRODUCT USED FOR UNKNOWN INDICATION
     Dosage: 100/25 MG DEPOT CAPSULE; 1 CAPSULE AT 8-9 PM
  15. KETIPINOR [Concomitant]
     Active Substance: QUETIAPINE FUMARATE
     Indication: PRODUCT USED FOR UNKNOWN INDICATION
  16. KETIPINOR [Concomitant]
     Active Substance: QUETIAPINE FUMARATE
     Indication: PRODUCT USED FOR UNKNOWN INDICATION
     Dosage: MAX 75 MG/DAY
  17. TAMSULOSIINIHYDROKLORIDI ORION [Concomitant]
     Indication: PRODUCT USED FOR UNKNOWN INDICATION

REACTIONS (2)
  - Confusional state [Recovering/Resolving]
  - Memory impairment [Unknown]

NARRATIVE: CASE EVENT DATE: 2014
